FAERS Safety Report 13646976 (Version 1)
Quarter: 2017Q2

REPORT INFORMATION
  Report Type: Spontaneous
  Country: US (occurrence: US)
  Receive Date: 20170613
  Receipt Date: 20170613
  Transmission Date: 20170830
  Serious: Yes (Other)
  Sender: FDA-Public Use
  Company Number: None

PATIENT
  Age: 71 Year
  Sex: Female
  Weight: 90.72 kg

DRUGS (11)
  1. CITALOPRAM [Concomitant]
     Active Substance: CITALOPRAM HYDROBROMIDE
  2. CHANTIX [Suspect]
     Active Substance: VARENICLINE TARTRATE
     Indication: SMOKING CESSATION THERAPY
     Dosage: 05MG-11 TABS 1 PILL=1ST WEEK TWICE DAILY BY MOUTH?1 MG=42 TABS 2 PILLS-2ND WEEK
     Route: 048
     Dates: start: 20160302, end: 20160310
  3. BABY ASPIRIN [Concomitant]
     Active Substance: ASPIRIN
  4. IBUPROFIN [Concomitant]
  5. LOTREL [Concomitant]
     Active Substance: AMLODIPINE BESYLATE\BENAZEPRIL HYDROCHLORIDE
  6. DIAZEPAM. [Concomitant]
     Active Substance: DIAZEPAM
  7. ALLOPURINOL. [Concomitant]
     Active Substance: ALLOPURINOL
  8. MONTELUKAST [Concomitant]
     Active Substance: MONTELUKAST SODIUM
  9. EZETIMIBE. [Concomitant]
     Active Substance: EZETIMIBE
  10. HYDROCODONE ACETEMENTAPHINE [Concomitant]
  11. LIDOCAINE. [Concomitant]
     Active Substance: LIDOCAINE

REACTIONS (1)
  - Epistaxis [None]

NARRATIVE: CASE EVENT DATE: 20160309
